FAERS Safety Report 18456329 (Version 1)
Quarter: 2020Q4

REPORT INFORMATION
  Report Type: Spontaneous
  Country: EG (occurrence: EG)
  Receive Date: 20201103
  Receipt Date: 20201103
  Transmission Date: 20210114
  Serious: Yes (Death, Hospitalization, Other)
  Sender: FDA-Public Use
  Company Number: EG-SA-2020SA308042

PATIENT

DRUGS (1)
  1. MYOZYME [Suspect]
     Active Substance: ALGLUCOSIDASE ALFA
     Dosage: UNK
     Route: 041
     Dates: start: 20190310, end: 20200308

REACTIONS (5)
  - Wrong technique in product usage process [Unknown]
  - Dyspnoea [Fatal]
  - Pyrexia [Fatal]
  - Cough [Fatal]
  - Pneumonia [Fatal]

NARRATIVE: CASE EVENT DATE: 20200315
